FAERS Safety Report 16950528 (Version 1)
Quarter: 2019Q4

REPORT INFORMATION
  Report Type: Spontaneous
  Country: US (occurrence: US)
  Receive Date: 20191023
  Receipt Date: 20191023
  Transmission Date: 20200122
  Serious: Yes (Hospitalization, Other)
  Sender: FDA-Public Use
  Company Number: US-AUROBINDO-AUR-APL-2019-068250

PATIENT
  Age: 30 Year
  Sex: Female

DRUGS (1)
  1. IBUPROFEN. [Suspect]
     Active Substance: IBUPROFEN
     Indication: PROCEDURAL PAIN
     Dosage: 400 MILLIGRAM, EVERY FOUR HOUR
     Route: 065

REACTIONS (4)
  - Abdominal pain [Unknown]
  - Nausea [Unknown]
  - Gastric perforation [Unknown]
  - Vomiting [Unknown]
